FAERS Safety Report 9226760 (Version 1)
Quarter: 2013Q2

REPORT INFORMATION
  Report Type: Spontaneous
  Country: US (occurrence: US)
  Receive Date: 20130412
  Receipt Date: 20130412
  Transmission Date: 20140414
  Serious: No
  Sender: FDA-Public Use
  Company Number: US-009507513-1304USA005101

PATIENT
  Age: 64 Year
  Sex: Female

DRUGS (5)
  1. DULERA [Suspect]
     Indication: DYSPNOEA
     Dosage: 2 DF, BID (2 PUFF IN THE MORNING 2 PUFFS IN EVENING)
     Route: 055
     Dates: start: 20130409
  2. PREDNISONE [Concomitant]
     Dosage: UNK
  3. SINGULAIR [Concomitant]
     Dosage: UNK
  4. PROAIR (ALBUTEROL SULFATE) [Concomitant]
     Dosage: UNK
  5. LUMIGAN [Concomitant]
     Dosage: UNK

REACTIONS (4)
  - Epistaxis [Not Recovered/Not Resolved]
  - Nasal discomfort [Not Recovered/Not Resolved]
  - Headache [Not Recovered/Not Resolved]
  - Insomnia [Not Recovered/Not Resolved]
